FAERS Safety Report 21877304 (Version 1)
Quarter: 2023Q1

REPORT INFORMATION
  Report Type: Spontaneous
  Country: PL (occurrence: PL)
  Receive Date: 20230118
  Receipt Date: 20230118
  Transmission Date: 20230417
  Serious: Yes (Other)
  Sender: FDA-Public Use
  Company Number: None

PATIENT
  Age: 44 Year
  Sex: Female
  Weight: 64 kg

DRUGS (3)
  1. OXALIPLATIN [Suspect]
     Active Substance: OXALIPLATIN
     Indication: Product used for unknown indication
     Dosage: UNIT DOSE : 146.89 MG
     Dates: start: 20220809, end: 20220809
  2. FLUOROURACIL [Suspect]
     Active Substance: FLUOROURACIL
     Indication: Product used for unknown indication
     Dosage: UNIT DOSE: 1036.86 MG , DURATION : 2 DAYS
     Dates: start: 20220809, end: 20220811
  3. FLUOROURACIL [Suspect]
     Active Substance: FLUOROURACIL
     Dosage: UNIT DOSE: 691.24 MG , DURATION : 1 DAYS
     Dates: start: 20220809, end: 20220810

REACTIONS (1)
  - Neutropenia [Recovered/Resolved with Sequelae]

NARRATIVE: CASE EVENT DATE: 20220829
